FAERS Safety Report 9855292 (Version 1)
Quarter: 2014Q1

REPORT INFORMATION
  Report Type: Spontaneous
  Country: NL (occurrence: NL)
  Receive Date: 20140130
  Receipt Date: 20140130
  Transmission Date: 20141002
  Serious: Yes (Other)
  Sender: FDA-Public Use
  Company Number: NL-ASTRAZENECA-2014SE05561

PATIENT
  Age: 67 Year
  Sex: Male

DRUGS (5)
  1. SEROQUEL XR [Suspect]
     Route: 048
  2. SEROQUEL XR [Suspect]
     Route: 048
  3. LITHIUM [Concomitant]
  4. LITHIUM [Concomitant]
  5. DEPAKINE [Concomitant]

REACTIONS (5)
  - Aphasia [Unknown]
  - Syncope [Unknown]
  - Gait disturbance [Unknown]
  - Somnolence [Unknown]
  - Sedation [Unknown]
